FAERS Safety Report 9522481 (Version 1)
Quarter: 2013Q3

REPORT INFORMATION
  Report Type: Spontaneous
  Country: CA (occurrence: CA)
  Receive Date: 20130913
  Receipt Date: 20130913
  Transmission Date: 20140515
  Serious: Yes (Other)
  Sender: FDA-Public Use
  Company Number: CA-ASTRAZENECA-2013SE68007

PATIENT
  Age: 68 Year
  Sex: Female

DRUGS (1)
  1. SYMBICORT TURBUHALER [Suspect]
     Indication: CHRONIC OBSTRUCTIVE PULMONARY DISEASE
     Dosage: 200, 2 PUFF TOTAL, FREQUENCY: BID
     Route: 055
     Dates: start: 2011

REACTIONS (1)
  - Macular fibrosis [Not Recovered/Not Resolved]
